FAERS Safety Report 12975846 (Version 1)
Quarter: 2016Q4

REPORT INFORMATION
  Report Type: Spontaneous
  Country: US (occurrence: US)
  Receive Date: 20161125
  Receipt Date: 20161125
  Transmission Date: 20170207
  Serious: No
  Sender: FDA-Public Use
  Company Number: US-009507513-1611USA005799

PATIENT
  Age: 42 Year
  Sex: Female

DRUGS (3)
  1. BELSOMRA [Suspect]
     Active Substance: SUVOREXANT
     Indication: INSOMNIA
     Dosage: 10 MG, UNK
     Route: 048
     Dates: start: 20160914, end: 20160919
  2. KLONOPIN [Concomitant]
     Active Substance: CLONAZEPAM
  3. TOPAMAX [Concomitant]
     Active Substance: TOPIRAMATE

REACTIONS (2)
  - Foot fracture [Recovered/Resolved]
  - Fall [Recovered/Resolved]

NARRATIVE: CASE EVENT DATE: 20160919
